FAERS Safety Report 23902531 (Version 2)
Quarter: 2024Q2

REPORT INFORMATION
  Report Type: Spontaneous
  Country: US (occurrence: US)
  Receive Date: 20240527
  Receipt Date: 20240625
  Transmission Date: 20240716
  Serious: No
  Sender: FDA-Public Use
  Company Number: US-SA-SAC20240524000156

PATIENT
  Sex: Male

DRUGS (8)
  1. DUPIXENT [Suspect]
     Active Substance: DUPILUMAB
     Indication: Dermatitis atopic
     Dosage: 300 MG, QOW
     Route: 058
  2. MINIPEN [Concomitant]
     Dosage: UNK
  3. CRESTOR [Concomitant]
     Active Substance: ROSUVASTATIN CALCIUM
  4. METOPROLOL [Concomitant]
     Active Substance: METOPROLOL
  5. MICARDIS [Concomitant]
     Active Substance: TELMISARTAN
  6. PLAVIX [Concomitant]
     Active Substance: CLOPIDOGREL BISULFATE
  7. TRESIBA [Concomitant]
     Active Substance: INSULIN DEGLUDEC
  8. ZETIA [Concomitant]
     Active Substance: EZETIMIBE

REACTIONS (2)
  - Arthritis [Unknown]
  - Product dose omission in error [Unknown]
